FAERS Safety Report 8540962-4 (Version None)
Quarter: 2012Q3

REPORT INFORMATION
  Report Type: 
  Country: None (occurrence: None)
  Receive Date: 20120726
  Receipt Date: 20110811
  Transmission Date: 20120928
  Serious: No
  Sender: FDA-Public Use
  Company Number: US-ASTRAZENECA-2011SE47525

PATIENT
  Age: 53 Year
  Sex: Male

DRUGS (1)
  1. SEROQUEL XR [Suspect]
     Route: 048

REACTIONS (8)
  - ASTHENIA [None]
  - DRUG DOSE OMISSION [None]
  - POST-TRAUMATIC STRESS DISORDER [None]
  - DRUG WITHDRAWAL SYNDROME [None]
  - IMPAIRED WORK ABILITY [None]
  - PANIC ATTACK [None]
  - MENTAL IMPAIRMENT [None]
  - ANXIETY [None]
